FAERS Safety Report 25022256 (Version 3)
Quarter: 2025Q2

REPORT INFORMATION
  Report Type: Report from Study
  Country: US (occurrence: US)
  Receive Date: 20250228
  Receipt Date: 20250409
  Transmission Date: 20250716
  Serious: Yes (Life-Threatening, Hospitalization, Other)
  Sender: JOHNSON AND JOHNSON
  Company Number: US-JNJFOC-20250114316

PATIENT
  Age: 55 Year
  Sex: Female
  Weight: 81.647 kg

DRUGS (10)
  1. EPOPROSTENOL SODIUM [Suspect]
     Active Substance: EPOPROSTENOL SODIUM
     Indication: Pulmonary arterial hypertension
     Route: 065
  2. EPOPROSTENOL SODIUM [Suspect]
     Active Substance: EPOPROSTENOL SODIUM
     Dosage: 32 NG/KG/MIN
     Route: 042
  3. EPOPROSTENOL SODIUM [Suspect]
     Active Substance: EPOPROSTENOL SODIUM
     Dosage: 32 NG/KG/MIN
     Route: 042
  4. UPTRAVI [Suspect]
     Active Substance: SELEXIPAG
     Indication: Pulmonary hypertension
     Route: 048
     Dates: start: 202404, end: 202410
  5. UPTRAVI [Suspect]
     Active Substance: SELEXIPAG
     Indication: Pulmonary arterial hypertension
  6. TADALAFIL [Suspect]
     Active Substance: TADALAFIL
     Indication: Pulmonary arterial hypertension
     Route: 065
     Dates: start: 202102
  7. AMBRISENTAN [Concomitant]
     Active Substance: AMBRISENTAN
     Indication: Pulmonary arterial hypertension
     Dates: start: 202102, end: 202412
  8. AMLODIPINE [Concomitant]
     Active Substance: AMLODIPINE BESYLATE
  9. LASIX [Concomitant]
     Active Substance: FUROSEMIDE
     Indication: Right ventricular failure
     Route: 048
  10. SPIRONOLACTONE [Concomitant]
     Active Substance: SPIRONOLACTONE
     Indication: Right ventricular failure
     Route: 048

REACTIONS (9)
  - Cardiac failure acute [Recovering/Resolving]
  - Pulmonary arterial hypertension [Unknown]
  - Oxygen saturation decreased [Recovering/Resolving]
  - Ascites [Unknown]
  - Nausea [Unknown]
  - Oedema peripheral [Unknown]
  - Hypotension [Unknown]
  - Malaise [Unknown]
  - Pain in extremity [Unknown]

NARRATIVE: CASE EVENT DATE: 20240101
